FAERS Safety Report 15109435 (Version 3)
Quarter: 2022Q1

REPORT INFORMATION
  Report Type: Report from Study
  Country: IT (occurrence: IT)
  Receive Date: 20180705
  Receipt Date: 20220216
  Transmission Date: 20220423
  Serious: Yes (Other)
  Sender: FDA-Public Use
  Company Number: IT-AUROBINDO-AUR-APL-2018-033847

PATIENT
  Age: 56 Year
  Sex: Female

DRUGS (5)
  1. AMOXICILLIN [Suspect]
     Active Substance: AMOXICILLIN
     Indication: Product used for unknown indication
     Dosage: UNK
     Route: 065
  2. CEFADROXIL [Suspect]
     Active Substance: CEFADROXIL
     Indication: Product used for unknown indication
     Dosage: 2 MILLIGRAM PER MILLILITRE IN 0.9% SODIUM CHLORIDE
     Route: 023
  3. AMPICILLIN [Suspect]
     Active Substance: AMPICILLIN
     Indication: Product used for unknown indication
     Dosage: UNK
     Route: 065
  4. CEPHALEXIN [Suspect]
     Active Substance: CEPHALEXIN
     Indication: Product used for unknown indication
     Dosage: 2 MILLIGRAM PER MILLILITRE IN 0.9% SODIUM CHLORIDE
     Route: 023
  5. CEFACLOR [Suspect]
     Active Substance: CEFACLOR
     Indication: Product used for unknown indication
     Dosage: 2 MILLIGRAM PER MILLILITRE IN 0.9% SODIUM CHLORIDE
     Route: 023

REACTIONS (4)
  - Type IV hypersensitivity reaction [Unknown]
  - Oedema [Unknown]
  - Cross sensitivity reaction [Unknown]
  - Rash maculo-papular [Unknown]
